FAERS Safety Report 10714749 (Version 3)
Quarter: 2015Q1

REPORT INFORMATION
  Report Type: Spontaneous
  Country: US (occurrence: US)
  Receive Date: 20150115
  Receipt Date: 20150304
  Transmission Date: 20150721
  Serious: Yes (Hospitalization, Other)
  Sender: FDA-Public Use
  Company Number: US-BAXTER-2015BAX001795

PATIENT
  Age: 35 Year
  Sex: Female
  Weight: 63.11 kg

DRUGS (4)
  1. GAMMAGARD LIQUID [Suspect]
     Active Substance: HUMAN IMMUNOGLOBULIN G
     Indication: IMMUNODEFICIENCY COMMON VARIABLE
     Route: 042
     Dates: start: 20131014
  2. LOESTRIN 24 [Concomitant]
     Indication: CONTRACEPTION
     Route: 065
  3. GAMMAGARD LIQUID [Suspect]
     Active Substance: HUMAN IMMUNOGLOBULIN G
     Route: 042
     Dates: start: 20141221
  4. DIAMOX SEQUELS [Concomitant]
     Active Substance: ACETAZOLAMIDE
     Indication: PRODUCT USED FOR UNKNOWN INDICATION
     Route: 065

REACTIONS (5)
  - Cardiac disorder [Unknown]
  - Heart rate increased [Recovered/Resolved]
  - Cerebral thrombosis [Recovered/Resolved]
  - CSF pressure increased [Unknown]
  - Aphasia [Unknown]

NARRATIVE: CASE EVENT DATE: 20141228
